FAERS Safety Report 13330431 (Version 3)
Quarter: 2017Q2

REPORT INFORMATION
  Report Type: Spontaneous
  Country: US (occurrence: US)
  Receive Date: 20170313
  Receipt Date: 20170621
  Transmission Date: 20170830
  Serious: Yes (Death, Hospitalization)
  Sender: FDA-Public Use
  Company Number: US-JNJFOC-20170312215

PATIENT
  Age: 75 Year
  Sex: Male

DRUGS (9)
  1. XARELTO [Suspect]
     Active Substance: RIVAROXABAN
     Indication: ATRIAL FIBRILLATION
     Dosage: VARYING DOSES OF 15 MG DAILY AND 20 MG
     Route: 048
     Dates: start: 20131001, end: 20140101
  2. XARELTO [Suspect]
     Active Substance: RIVAROXABAN
     Indication: THROMBOSIS PROPHYLAXIS
     Dosage: VARYING DOSES OF 15 MG DAILY AND 20 MG
     Route: 048
     Dates: end: 201503
  3. XARELTO [Suspect]
     Active Substance: RIVAROXABAN
     Indication: THROMBOSIS PROPHYLAXIS
     Dosage: VARYING DOSES OF 15 MG DAILY AND 20 MG
     Route: 048
     Dates: end: 20150308
  4. XARELTO [Suspect]
     Active Substance: RIVAROXABAN
     Indication: THROMBOSIS PROPHYLAXIS
     Dosage: VARYING DOSES OF 15 MG DAILY AND 20 MG
     Route: 048
     Dates: start: 20131001, end: 20140101
  5. XARELTO [Suspect]
     Active Substance: RIVAROXABAN
     Indication: CEREBROVASCULAR ACCIDENT PROPHYLAXIS
     Dosage: VARYING DOSES OF 15 MG DAILY AND 20 MG
     Route: 048
     Dates: end: 20150308
  6. XARELTO [Suspect]
     Active Substance: RIVAROXABAN
     Indication: ATRIAL FIBRILLATION
     Dosage: VARYING DOSES OF 15 MG DAILY AND 20 MG
     Route: 048
     Dates: end: 20150308
  7. XARELTO [Suspect]
     Active Substance: RIVAROXABAN
     Indication: ATRIAL FIBRILLATION
     Dosage: VARYING DOSES OF 15 MG DAILY AND 20 MG
     Route: 048
     Dates: end: 201503
  8. XARELTO [Suspect]
     Active Substance: RIVAROXABAN
     Indication: CEREBROVASCULAR ACCIDENT PROPHYLAXIS
     Dosage: VARYING DOSES OF 15 MG DAILY AND 20 MG
     Route: 048
     Dates: start: 20131001, end: 20140101
  9. XARELTO [Suspect]
     Active Substance: RIVAROXABAN
     Indication: CEREBROVASCULAR ACCIDENT PROPHYLAXIS
     Dosage: VARYING DOSES OF 15 MG DAILY AND 20 MG
     Route: 048
     Dates: end: 201503

REACTIONS (2)
  - Cerebrovascular accident [Fatal]
  - Microcytic anaemia [Recovering/Resolving]

NARRATIVE: CASE EVENT DATE: 20150308
